APPROVED DRUG PRODUCT: DICYCLOMINE HYDROCHLORIDE
Active Ingredient: DICYCLOMINE HYDROCHLORIDE
Strength: 40MG
Dosage Form/Route: TABLET;ORAL
Application: A216736 | Product #002
Applicant: RUBICON RESEARCH LTD
Approved: Mar 25, 2025 | RLD: No | RS: Yes | Type: RX